FAERS Safety Report 6314491-2 (Version None)
Quarter: 2009Q3

REPORT INFORMATION
  Report Type: 
  Country: None (occurrence: None)
  Receive Date: 20090817
  Receipt Date: 20090805
  Transmission Date: 20100115
  Serious: Yes (Hospitalization, Other)
  Sender: FDA-Public Use
  Company Number: 2009002382

PATIENT
  Age: 65 Year
  Sex: Male

DRUGS (4)
  1. TARCEVA [Suspect]
     Indication: LUNG SQUAMOUS CELL CARCINOMA STAGE UNSPECIFIED
     Dosage: 150 MG, ORAL
     Route: 048
     Dates: start: 20090601, end: 20090716
  2. ISONIAZID [Concomitant]
  3. RIFAMPICIN [Concomitant]
  4. ETHAMBUTOL (ETHAMBUTOL) [Concomitant]

REACTIONS (4)
  - CHEST PAIN [None]
  - DYSPNOEA [None]
  - HAEMOPTYSIS [None]
  - PLEURAL EFFUSION [None]
